FAERS Safety Report 20647592 (Version 1)
Quarter: 2022Q1

REPORT INFORMATION
  Report Type: Report from Study
  Country: US (occurrence: US)
  Receive Date: 20220329
  Receipt Date: 20220329
  Transmission Date: 20220423
  Serious: Yes (Hospitalization)
  Sender: FDA-Public Use
  Company Number: US-MYLANLABS-2022M1023214

PATIENT
  Age: 22 Year
  Sex: Male

DRUGS (2)
  1. RISPERIDONE [Suspect]
     Active Substance: RISPERIDONE
     Indication: Schizophrenia
     Dosage: 5 MILLIGRAM (TITRATION TO 5MG OVER 4 DAYS)
     Route: 065
  2. ARIPIPRAZOLE [Suspect]
     Active Substance: ARIPIPRAZOLE
     Indication: Schizophrenia
     Dosage: 20 MILLIGRAM (UNKNOWN INITIAL DOSE THAT WAS INCREASED TO 20MG)
     Route: 065

REACTIONS (3)
  - Psychotic disorder [Recovering/Resolving]
  - Rebound effect [Unknown]
  - Drug ineffective [Unknown]
